APPROVED DRUG PRODUCT: AMOXICILLIN AND CLAVULANATE POTASSIUM
Active Ingredient: AMOXICILLIN; CLAVULANATE POTASSIUM
Strength: 600MG/5ML;EQ 42.9MG BASE/5ML
Dosage Form/Route: FOR SUSPENSION;ORAL
Application: A065162 | Product #001 | TE Code: AB
Applicant: TEVA PHARMACEUTICALS USA INC
Approved: Mar 12, 2004 | RLD: No | RS: Yes | Type: RX